FAERS Safety Report 6185371-0 (Version None)
Quarter: 2009Q2

REPORT INFORMATION
  Report Type: 
  Country: None (occurrence: None)
  Receive Date: 20090507
  Receipt Date: 20090421
  Transmission Date: 20091009
  Serious: Yes (Hospitalization)
  Sender: FDA-Public Use
  Company Number: 8045468

PATIENT
  Age: 38 Year
  Sex: Female

DRUGS (8)
  1. PREDNISOLONE [Suspect]
     Indication: AUTOIMMUNE THROMBOCYTOPENIA
     Dosage: 60 MG /D PO
     Route: 048
  2. PREDNISOLONE [Suspect]
     Indication: AUTOIMMUNE THROMBOCYTOPENIA
     Dosage: 1 MG/KG /D
  3. PREDNISOLONE [Suspect]
     Indication: AUTOIMMUNE THROMBOCYTOPENIA
     Dosage: 50 MG /D
  4. STEROIDS [Concomitant]
  5. SANDOGLOBULIN /00025201/ [Concomitant]
  6. HYDROXYCOBALAMIN [Concomitant]
  7. CYANOCOBALAMIN [Concomitant]
  8. WINRHO [Concomitant]

REACTIONS (5)
  - AUTOIMMUNE THROMBOCYTOPENIA [None]
  - DRUG EXPOSURE DURING PREGNANCY [None]
  - HAEMOGLOBIN DECREASED [None]
  - PROTEINURIA [None]
  - VITAMIN B12 DECREASED [None]
